FAERS Safety Report 5321410-4 (Version None)
Quarter: 2007Q2

REPORT INFORMATION
  Report Type: 
  Country: None (occurrence: None)
  Receive Date: 20070510
  Receipt Date: 20070430
  Transmission Date: 20071010
  Serious: Yes (Hospitalization)
  Sender: FDA-Public Use
  Company Number: FR-AMGEN-UK222803

PATIENT
  Sex: Male

DRUGS (3)
  1. NEULASTA [Suspect]
     Indication: CHEMOTHERAPY
     Route: 065
     Dates: start: 20070427, end: 20070427
  2. CARBOPLATIN [Concomitant]
     Route: 065
     Dates: start: 20070423, end: 20070425
  3. ETOPOSIDE [Concomitant]
     Route: 065
     Dates: start: 20070423, end: 20070425

REACTIONS (5)
  - CHEST PAIN [None]
  - CONVULSION [None]
  - FATIGUE [None]
  - MUSCULOSKELETAL STIFFNESS [None]
  - PAIN [None]
